FAERS Safety Report 6242022-4 (Version None)
Quarter: 2009Q2

REPORT INFORMATION
  Report Type: 
  Country: None (occurrence: None)
  Receive Date: 20090622
  Receipt Date: 20090615
  Transmission Date: 20091009
  Serious: Yes (Life-Threatening)
  Sender: FDA-Public Use
  Company Number: ADR 20440813-001

PATIENT
  Sex: Male

DRUGS (4)
  1. RISPERIDONE [Suspect]
  2. CLOPIXOL [Concomitant]
  3. DIAZEPAM [Concomitant]
  4. HALOPERIDOL [Concomitant]

REACTIONS (18)
  - ABASIA [None]
  - APATHY [None]
  - DELUSION [None]
  - DISTURBANCE IN ATTENTION [None]
  - DYSARTHRIA [None]
  - DYSSTASIA [None]
  - EMOTIONAL DISORDER [None]
  - EXTRAPYRAMIDAL DISORDER [None]
  - FALL [None]
  - GENERAL PHYSICAL HEALTH DETERIORATION [None]
  - INDIFFERENCE [None]
  - LIP EXFOLIATION [None]
  - NEUROLEPTIC MALIGNANT SYNDROME [None]
  - QUALITY OF LIFE DECREASED [None]
  - REFUSAL OF TREATMENT BY PATIENT [None]
  - SALIVARY HYPERSECRETION [None]
  - TREMOR [None]
  - URINARY INCONTINENCE [None]
